FAERS Safety Report 6943574-9 (Version None)
Quarter: 2010Q3

REPORT INFORMATION
  Report Type: 
  Country: None (occurrence: None)
  Receive Date: 20100826
  Receipt Date: 20100812
  Transmission Date: 20110219
  Serious: Yes (Hospitalization)
  Sender: FDA-Public Use
  Company Number: DE-MYLANLABS-2010S1014719

PATIENT
  Age: 77 Year
  Sex: Male

DRUGS (4)
  1. TRAMADOL HCL [Suspect]
     Indication: BACK PAIN
  2. TORASEMID [Interacting]
     Indication: HYPERTENSION
  3. PANTOPRAZOLE SODIUM [Concomitant]
     Indication: PROPHYLAXIS AGAINST GASTROINTESTINAL ULCER
  4. MIRTAZAPIN [Concomitant]
     Indication: DEPRESSION

REACTIONS (2)
  - CONSTIPATION [None]
  - DRUG INTERACTION [None]
